FAERS Safety Report 10019859 (Version 1)
Quarter: 2014Q1

REPORT INFORMATION
  Report Type: Spontaneous
  Country: US (occurrence: US)
  Receive Date: 20140318
  Receipt Date: 20140318
  Transmission Date: 20141002
  Serious: No
  Sender: FDA-Public Use
  Company Number: US-PFIZER INC-2014076745

PATIENT
  Age: 53 Year
  Sex: Female
  Weight: 65.31 kg

DRUGS (1)
  1. LYRICA [Suspect]
     Indication: FIBROMYALGIA
     Dosage: UNK

REACTIONS (4)
  - Swelling face [Unknown]
  - Lip swelling [Unknown]
  - Local swelling [Unknown]
  - Weight increased [Unknown]
